FAERS Safety Report 12428695 (Version 1)
Quarter: 2016Q2

REPORT INFORMATION
  Report Type: Spontaneous
  Country: GB (occurrence: GB)
  Receive Date: 20160602
  Receipt Date: 20160602
  Transmission Date: 20160815
  Serious: Yes (Other)
  Sender: FDA-Public Use
  Company Number: GB-WATSON-2016-10983

PATIENT
  Age: 50 Year
  Sex: Male
  Weight: 78 kg

DRUGS (1)
  1. METRONIDAZOLE (UNKNOWN) [Suspect]
     Active Substance: METRONIDAZOLE
     Indication: GINGIVITIS
     Dosage: 200 MG, TID
     Route: 048
     Dates: start: 20160506, end: 20160512

REACTIONS (10)
  - Dizziness [Unknown]
  - Photophobia [Unknown]
  - Cough [Unknown]
  - Eye pain [Unknown]
  - Somnolence [Unknown]
  - Nausea [Unknown]
  - Dysgeusia [Unknown]
  - Pyrexia [Recovered/Resolved]
  - Headache [Unknown]
  - Cheilitis [Unknown]

NARRATIVE: CASE EVENT DATE: 20160506
